FAERS Safety Report 11454760 (Version 1)
Quarter: 2015Q3

REPORT INFORMATION
  Report Type: Spontaneous
  Country: US (occurrence: US)
  Receive Date: 20150831
  Receipt Date: 20150831
  Transmission Date: 20151125
  Serious: No
  Sender: FDA-Public Use
  Company Number: US-ELI_LILLY_AND_COMPANY-US201005003325

PATIENT
  Age: 63 Year
  Sex: Female

DRUGS (3)
  1. TRAMADOL. [Concomitant]
     Active Substance: TRAMADOL
     Indication: PAIN
  2. CYMBALTA [Suspect]
     Active Substance: DULOXETINE HYDROCHLORIDE
     Indication: DEPRESSION
     Dosage: 60 MG, DAILY (1/D)
  3. XANAX [Concomitant]
     Active Substance: ALPRAZOLAM
     Indication: IRRITABILITY

REACTIONS (11)
  - Feeling abnormal [Not Recovered/Not Resolved]
  - Anxiety [Unknown]
  - Crying [Not Recovered/Not Resolved]
  - Irritability [Not Recovered/Not Resolved]
  - Blood pressure increased [Unknown]
  - Lethargy [Not Recovered/Not Resolved]
  - Drug withdrawal syndrome [Not Recovered/Not Resolved]
  - Fatigue [Not Recovered/Not Resolved]
  - Depression [Not Recovered/Not Resolved]
  - Tremor [Not Recovered/Not Resolved]
  - Dizziness [Not Recovered/Not Resolved]

NARRATIVE: CASE EVENT DATE: 200905
